FAERS Safety Report 23830824 (Version 1)
Quarter: 2024Q2

REPORT INFORMATION
  Report Type: Spontaneous
  Country: US (occurrence: None)
  Receive Date: 20240507
  Receipt Date: 20240507
  Transmission Date: 20240716
  Serious: Yes (Hospitalization)
  Sender: FDA-Public Use
  Company Number: None

PATIENT
  Age: 65 Year
  Sex: Male
  Weight: 75.3 kg

DRUGS (3)
  1. CARBOPLATIN [Suspect]
     Active Substance: CARBOPLATIN
  2. ERBITUX [Suspect]
     Active Substance: CETUXIMAB
  3. TAXOTERE [Suspect]
     Active Substance: DOCETAXEL
     Dosage: OTHER QUANTITY : 131.3MG;?

REACTIONS (8)
  - Chills [None]
  - Dizziness [None]
  - Respiratory distress [None]
  - Hypoxia [None]
  - Tachycardia [None]
  - Tachypnoea [None]
  - Blood lactic acid increased [None]
  - Bacteraemia [None]

NARRATIVE: CASE EVENT DATE: 20240419
